FAERS Safety Report 17847381 (Version 3)
Quarter: 2020Q3

REPORT INFORMATION
  Report Type: Spontaneous
  Country: US (occurrence: US)
  Receive Date: 20200601
  Receipt Date: 20200715
  Transmission Date: 20201103
  Serious: No
  Sender: FDA-Public Use
  Company Number: US-AMGEN-USASP2020086201

PATIENT

DRUGS (2)
  1. NPLATE [Suspect]
     Active Substance: ROMIPLOSTIM
     Indication: PRODUCT USED FOR UNKNOWN INDICATION
     Dosage: 250 UNK
     Route: 065
  2. NPLATE [Suspect]
     Active Substance: ROMIPLOSTIM
     Dosage: UNK, UNK
     Route: 065

REACTIONS (1)
  - Intercepted medication error [Unknown]
